FAERS Safety Report 7488213-6 (Version None)
Quarter: 2011Q2

REPORT INFORMATION
  Report Type: 
  Country: None (occurrence: None)
  Receive Date: 20110518
  Receipt Date: 20110509
  Transmission Date: 20111010
  Serious: Yes (Other)
  Sender: FDA-Public Use
  Company Number: HR-ASTRAZENECA-2011SE27964

PATIENT
  Age: 33 Year
  Sex: Male
  Weight: 95 kg

DRUGS (6)
  1. CONTROLOC [Concomitant]
     Route: 048
     Dates: start: 20050101
  2. SUFENTA PRESERVATIVE FREE [Suspect]
     Indication: GENERAL ANAESTHESIA
     Route: 042
     Dates: start: 20110323, end: 20110323
  3. LENDACIN [Concomitant]
     Indication: PROPHYLAXIS
     Route: 042
     Dates: start: 20110323, end: 20110405
  4. ENOXAPARIN SODIUM [Concomitant]
     Indication: HAEMODIALYSIS
     Dosage: AS NECESSARY
     Dates: start: 20110324
  5. DIPRIVAN [Suspect]
     Indication: GENERAL ANAESTHESIA
     Route: 042
     Dates: start: 20110323, end: 20110323
  6. SEVOFLURANE [Suspect]
     Indication: GENERAL ANAESTHESIA
     Route: 055
     Dates: start: 20110323, end: 20110323

REACTIONS (2)
  - RENAL FAILURE ACUTE [None]
  - RENAL TUBULAR NECROSIS [None]
